FAERS Safety Report 12743247 (Version 3)
Quarter: 2016Q4

REPORT INFORMATION
  Report Type: Spontaneous
  Country: DK (occurrence: DK)
  Receive Date: 20160914
  Receipt Date: 20161105
  Transmission Date: 20170207
  Serious: Yes (Life-Threatening, Hospitalization)
  Sender: FDA-Public Use
  Company Number: DK-MYLANLABS-2016M1038771

PATIENT

DRUGS (2)
  1. CLOZAPINE. [Suspect]
     Active Substance: CLOZAPINE
     Indication: SCHIZOPHRENIA
     Dosage: 600 MG, QD
     Route: 048
  2. RISPERIDONE. [Interacting]
     Active Substance: RISPERIDONE
     Indication: SCHIZOPHRENIA
     Dosage: 6 MG, QD
     Route: 048

REACTIONS (2)
  - Drug prescribing error [Unknown]
  - Labelled drug-drug interaction medication error [Unknown]
